FAERS Safety Report 4405515-8 (Version None)
Quarter: 2004Q3

REPORT INFORMATION
  Report Type: 
  Country: None (occurrence: None)
  Receive Date: 20040723
  Receipt Date: 20030916
  Transmission Date: 20050211
  Serious: No
  Sender: FDA-Public Use
  Company Number: US-GLAXOSMITHKLINE-A0426139A

PATIENT
  Age: 70 Year
  Sex: Female

DRUGS (11)
  1. AVANDIA [Suspect]
     Dosage: 4MG PER DAY
     Route: 048
     Dates: start: 20020101
  2. GLUCOPHAGE XR [Concomitant]
  3. AMARYL [Concomitant]
  4. ATENOLOL [Concomitant]
  5. DETROL [Concomitant]
  6. CELEXA [Concomitant]
  7. CELEBREX [Concomitant]
  8. NORVASC [Concomitant]
  9. ISOSORBIDE [Concomitant]
  10. ATIVAN [Concomitant]
  11. ACTIFED [Concomitant]

REACTIONS (3)
  - DYSPNOEA EXACERBATED [None]
  - SWELLING [None]
  - WEIGHT INCREASED [None]
